FAERS Safety Report 14734427 (Version 1)
Quarter: 2018Q2

REPORT INFORMATION
  Report Type: Spontaneous
  Country: US (occurrence: US)
  Receive Date: 20180403
  Receipt Date: 20180403
  Transmission Date: 20180711
  Serious: Yes (Hospitalization)
  Sender: FDA-Public Use
  Company Number: None

PATIENT
  Sex: Female

DRUGS (5)
  1. FORTEO [Suspect]
     Active Substance: TERIPARATIDE
     Indication: OSTEOPOROSIS
     Route: 058
     Dates: start: 20180113
  2. OMEPRAZOLE 40MG [Concomitant]
     Active Substance: OMEPRAZOLE
  3. PREDNISOLONE OPHTH SUSP 0.1% [Concomitant]
  4. LISINOPRIL 10MG [Concomitant]
     Active Substance: LISINOPRIL
  5. SUCRALFATE 1 GRAM [Concomitant]

REACTIONS (3)
  - Gastrooesophageal reflux disease [None]
  - Blood pressure increased [None]
  - Chest pain [None]
